FAERS Safety Report 14648173 (Version 1)
Quarter: 2018Q1

REPORT INFORMATION
  Report Type: Spontaneous
  Country: IT (occurrence: IT)
  Receive Date: 20180316
  Receipt Date: 20180316
  Transmission Date: 20180509
  Serious: Yes (Hospitalization)
  Sender: FDA-Public Use
  Company Number: IT-TEVA-2018-IT-867867

PATIENT
  Age: 80 Year
  Sex: Female

DRUGS (1)
  1. CAPECITABINE. [Suspect]
     Active Substance: CAPECITABINE
     Indication: GASTROINTESTINAL CARCINOMA
     Route: 048
     Dates: start: 20170101, end: 20170921

REACTIONS (4)
  - Hypokalaemia [Unknown]
  - Loss of consciousness [Unknown]
  - Joint injury [Unknown]
  - Face injury [Unknown]

NARRATIVE: CASE EVENT DATE: 20170921
